FAERS Safety Report 7597699-8 (Version None)
Quarter: 2011Q3

REPORT INFORMATION
  Report Type: 
  Country: None (occurrence: None)
  Receive Date: 20110708
  Receipt Date: 20110615
  Transmission Date: 20111222
  Serious: Yes (Hospitalization)
  Sender: FDA-Public Use
  Company Number: US-GLAXOSMITHKLINE-A0912365A

PATIENT
  Age: 73 Year
  Sex: Male
  Weight: 85 kg

DRUGS (8)
  1. VASOTEC [Concomitant]
  2. ALBUTEROL SULFATE AUTOHALER [Concomitant]
  3. CRESTOR [Concomitant]
  4. COMBIVENT [Concomitant]
  5. AVANDIA [Suspect]
     Indication: DIABETES MELLITUS
     Dosage: 4MG PER DAY
     Route: 048
  6. FLONASE [Concomitant]
  7. SPIRIVA [Concomitant]
  8. PULMICORT [Concomitant]

REACTIONS (3)
  - STENT PLACEMENT [None]
  - CORONARY ARTERY BYPASS [None]
  - MYOCARDIAL INFARCTION [None]
